FAERS Safety Report 22372204 (Version 1)
Quarter: 2023Q2

REPORT INFORMATION
  Report Type: Spontaneous
  Country: US (occurrence: US)
  Receive Date: 20230526
  Receipt Date: 20230526
  Transmission Date: 20230721
  Serious: Yes (Hospitalization)
  Sender: FDA-Public Use
  Company Number: US-MYLANLABS-2023M1054400

PATIENT
  Age: 62 Year
  Sex: Male

DRUGS (6)
  1. ADENOSINE [Suspect]
     Active Substance: ADENOSINE
     Indication: Thrombosis
     Dosage: 200 MILLIGRAM
     Route: 022
  2. ADENOSINE [Suspect]
     Active Substance: ADENOSINE
     Indication: Coronary artery occlusion
  3. ADENOSINE [Suspect]
     Active Substance: ADENOSINE
     Indication: Acute myocardial infarction
  4. NITROGLYCERIN [Suspect]
     Active Substance: NITROGLYCERIN
     Indication: Thrombosis
     Dosage: 600 MILLIGRAM
     Route: 022
  5. NITROGLYCERIN [Suspect]
     Active Substance: NITROGLYCERIN
     Indication: Coronary artery occlusion
  6. NITROGLYCERIN [Suspect]
     Active Substance: NITROGLYCERIN
     Indication: Acute myocardial infarction

REACTIONS (2)
  - Drug ineffective [Unknown]
  - Off label use [Unknown]
